FAERS Safety Report 17079800 (Version 4)
Quarter: 2020Q2

REPORT INFORMATION
  Report Type: Report from Study
  Country: US (occurrence: US)
  Receive Date: 20191127
  Receipt Date: 20200502
  Transmission Date: 20200713
  Serious: Yes (Hospitalization)
  Sender: FDA-Public Use
  Company Number: US-ABBVIE-19K-163-3170554-00

PATIENT
  Sex: Female

DRUGS (1)
  1. HUMIRA [Suspect]
     Active Substance: ADALIMUMAB
     Indication: RHEUMATOID ARTHRITIS
     Route: 058
     Dates: start: 20190814, end: 20191113

REACTIONS (6)
  - Colitis [Unknown]
  - Haematochezia [Unknown]
  - Internal haemorrhage [Recovered/Resolved]
  - Enteritis [Unknown]
  - Mouth ulceration [Unknown]
  - Haematemesis [Unknown]

NARRATIVE: CASE EVENT DATE: 2019
